FAERS Safety Report 25337528 (Version 1)
Quarter: 2025Q2

REPORT INFORMATION
  Report Type: Report from Study
  Country: IN (occurrence: IN)
  Receive Date: 20250520
  Receipt Date: 20250520
  Transmission Date: 20250717
  Serious: Yes (Hospitalization, Other)
  Sender: DAIICHI
  Company Number: IN-AstraZeneca-CH-00869340A

PATIENT
  Sex: Female
  Weight: 100 kg

DRUGS (1)
  1. ENHERTU [Suspect]
     Active Substance: FAM-TRASTUZUMAB DERUXTECAN-NXKI
     Indication: HER2 low breast cancer
     Dosage: 200 MG, ONCE EVERY 3 WK
     Route: 041

REACTIONS (5)
  - Mobility decreased [Unknown]
  - Syncope [Unknown]
  - Peripheral swelling [Unknown]
  - Paraesthesia [Unknown]
  - Asthenia [Unknown]
